FAERS Safety Report 19660494 (Version 1)
Quarter: 2021Q3

REPORT INFORMATION
  Report Type: Spontaneous
  Country: US (occurrence: US)
  Receive Date: 20210805
  Receipt Date: 20210805
  Transmission Date: 20211014
  Serious: No
  Sender: FDA-Public Use
  Company Number: None

PATIENT
  Sex: Female

DRUGS (17)
  1. MAGNESIUM [Concomitant]
     Active Substance: MAGNESIUM
  2. CALCIUM CITRATE + D [Concomitant]
     Active Substance: CALCIUM CITRATE\CHOLECALCIFEROL
  3. FUROSEMIDE. [Concomitant]
     Active Substance: FUROSEMIDE
  4. FIBER COMPLETE [Concomitant]
  5. ADEMPAS [Concomitant]
     Active Substance: RIOCIGUAT
  6. IRON [Concomitant]
     Active Substance: IRON
  7. ATORVASTATIN CALCIUM. [Concomitant]
     Active Substance: ATORVASTATIN CALCIUM
  8. AMBRISENTAN [Suspect]
     Active Substance: AMBRISENTAN
     Indication: PULMONARY HYPERTENSION
     Route: 048
  9. PROBIOTIC DAILY [Concomitant]
  10. ORENITRAM [Concomitant]
     Active Substance: TREPROSTINIL
  11. JANUMET [Concomitant]
     Active Substance: METFORMIN HYDROCHLORIDE\SITAGLIPTIN PHOSPHATE
  12. INVOKANA [Concomitant]
     Active Substance: CANAGLIFLOZIN
  13. WARFARIN SODIUM. [Concomitant]
     Active Substance: WARFARIN SODIUM
  14. GLIPIZIDE. [Concomitant]
     Active Substance: GLIPIZIDE
  15. SPIRONOLACTONE. [Concomitant]
     Active Substance: SPIRONOLACTONE
  16. DIGOXIN. [Concomitant]
     Active Substance: DIGOXIN
  17. MULTI FOR HER [Concomitant]

REACTIONS (1)
  - Catheterisation cardiac [None]
